FAERS Safety Report 17994079 (Version 1)
Quarter: 2020Q3

REPORT INFORMATION
  Report Type: Spontaneous
  Country: US (occurrence: US)
  Receive Date: 20200707
  Receipt Date: 20200707
  Transmission Date: 20201103
  Serious: No
  Sender: FDA-Public Use
  Company Number: None

PATIENT
  Age: 69 Year
  Sex: Female
  Weight: 56.25 kg

DRUGS (3)
  1. LEVOTHYROXINE. [Concomitant]
     Active Substance: LEVOTHYROXINE
  2. PRAVASTATIN. [Concomitant]
     Active Substance: PRAVASTATIN
  3. METFORMIN HYDROCHLORIDE. [Suspect]
     Active Substance: METFORMIN HYDROCHLORIDE
     Indication: GLUCOSE TOLERANCE IMPAIRED
     Dosage: ?          QUANTITY:1 TABLET(S);?
     Route: 048
     Dates: start: 20200114, end: 20200215

REACTIONS (4)
  - Muscle spasms [None]
  - Precancerous lesion of digestive tract [None]
  - Diarrhoea [None]
  - Large intestine polyp [None]

NARRATIVE: CASE EVENT DATE: 20200215
